FAERS Safety Report 9394273 (Version 2)
Quarter: 2013Q3

REPORT INFORMATION
  Report Type: Spontaneous
  Country: DE (occurrence: DE)
  Receive Date: 20130711
  Receipt Date: 20130827
  Transmission Date: 20140515
  Serious: Yes (Death)
  Sender: FDA-Public Use
  Company Number: DE-AMGEN-DEUSP2013047503

PATIENT
  Age: 86 Year
  Sex: Female

DRUGS (1)
  1. PROLIA [Suspect]
     Indication: OSTEOPOROSIS
     Dosage: 60 MG, Q6MO
     Route: 065
     Dates: start: 201203, end: 20130315

REACTIONS (8)
  - Cardiac arrest [Fatal]
  - Hyperhidrosis [Unknown]
  - Muscle spasms [Unknown]
  - Moaning [Unknown]
  - Nausea [Unknown]
  - Respiration abnormal [Unknown]
  - Vomiting [Unknown]
  - Loss of consciousness [Unknown]
